FAERS Safety Report 4744036-X (Version None)
Quarter: 2005Q3

REPORT INFORMATION
  Report Type: 
  Country: None (occurrence: None)
  Receive Date: 20050801
  Receipt Date: 20050516
  Transmission Date: 20060218
  Serious: Yes (Other)
  Sender: FDA-Public Use
  Company Number: 212263

PATIENT
  Age: 53 Year
  Sex: Female
  Weight: 73.3 kg

DRUGS (2)
  1. RITUXAN [Suspect]
     Indication: CHRONIC LYMPHOCYTIC LEUKAEMIA
     Dosage: 712 MG, Q4W, INTRAVENOUS
     Route: 042
     Dates: start: 20041115
  2. FLUDARABINE PHOSPHATE [Concomitant]

REACTIONS (3)
  - ARTHRALGIA [None]
  - URTICARIA GENERALISED [None]
  - WHEEZING [None]
